FAERS Safety Report 23845162 (Version 1)
Quarter: 2024Q2

REPORT INFORMATION
  Report Type: Spontaneous
  Country: US (occurrence: US)
  Receive Date: 20240511
  Receipt Date: 20240511
  Transmission Date: 20240716
  Serious: Yes (Life-Threatening, Hospitalization, Other)
  Sender: FDA-Public Use
  Company Number: US-EPICPHARMA-US-2024EPCLIT00445

PATIENT
  Age: 28 Year
  Sex: Male

DRUGS (1)
  1. VENLAFAXINE HYDROCHLORIDE [Suspect]
     Active Substance: VENLAFAXINE HYDROCHLORIDE
     Indication: Product used for unknown indication
     Dosage: 60+ OF 75 MG VENLAFAXINE PILLS
     Route: 048

REACTIONS (4)
  - Respiratory acidosis [Unknown]
  - Metabolic acidosis [Unknown]
  - Seizure [Recovering/Resolving]
  - Intentional overdose [Unknown]
